FAERS Safety Report 7736338-X (Version None)
Quarter: 2011Q3

REPORT INFORMATION
  Report Type: 
  Country: None (occurrence: None)
  Receive Date: 20110908
  Receipt Date: 20110829
  Transmission Date: 20111222
  Serious: Yes (Hospitalization)
  Sender: FDA-Public Use
  Company Number: US-BAYER-201035858NA

PATIENT
  Age: 24 Year
  Sex: Female
  Weight: 158.73 kg

DRUGS (16)
  1. YASMIN [Suspect]
     Route: 048
     Dates: start: 20060101, end: 20060622
  2. ADVAIR DISKUS 100/50 [Concomitant]
     Dosage: UNK UNK, BID
  3. POTASSIUM [Concomitant]
  4. SINGULAIR [Concomitant]
  5. ALBUTEROL SULFATE AUTOHALER [Concomitant]
     Dosage: UNK UNK, PRN
     Route: 055
  6. FLEXERIL [Concomitant]
     Dosage: 10 MG, UNK
  7. YAZ [Suspect]
     Route: 048
     Dates: start: 20060101, end: 20060622
  8. LIPITOR [Concomitant]
  9. BLOOD PRESSURE MEDICATION (NOS) [Concomitant]
  10. NSAID'S [Concomitant]
  11. TOPAMAX [Concomitant]
     Dosage: 50 MG, UNK
  12. LAMICTAL [Concomitant]
     Dosage: 25 MG, BID
  13. DIURETICS [Concomitant]
  14. CARDIAC THERAPY [Concomitant]
  15. COMBIVENT [Concomitant]
     Dosage: 2 PUFF(S), TID
     Route: 055
  16. FORTAMET [Concomitant]
     Dosage: 500 MG, TID

REACTIONS (1)
  - PULMONARY EMBOLISM [None]
